FAERS Safety Report 9179393 (Version 1)
Quarter: 2012Q4

REPORT INFORMATION
  Report Type: 
  Country: US (occurrence: US)
  Receive Date: 20121029
  Receipt Date: 20121029
  Transmission Date: 20130627
  Serious: No
  Sender: FDA-Public Use
  Company Number: US-MYLANLABS-2012S1002692

PATIENT
  Age: 73 Year
  Sex: Male

DRUGS (4)
  1. ETOPOSIDE [Suspect]
     Indication: PROSTATE CANCER
     Route: 048
     Dates: start: 20120127
  2. DEXAMETHASONE [Concomitant]
     Route: 048
  3. CYCLOPHOSPHAMIDE [Concomitant]
     Route: 048
  4. METFORMIN [Concomitant]
     Route: 048

REACTIONS (1)
  - Onychomadesis [Not Recovered/Not Resolved]
